FAERS Safety Report 4862597-7 (Version None)
Quarter: 2005Q4

REPORT INFORMATION
  Report Type: 
  Country: None (occurrence: None)
  Receive Date: 20051221
  Receipt Date: 20051209
  Transmission Date: 20060501
  Serious: Yes (Hospitalization)
  Sender: FDA-Public Use
  Company Number: BE-ROCHE-427990

PATIENT
  Age: 70 Year
  Sex: Female

DRUGS (7)
  1. MYCOPHENOLATE MOFETIL [Suspect]
     Route: 048
     Dates: start: 20050817
  2. TACROLIMUS [Suspect]
     Route: 048
     Dates: start: 20050817
  3. INSULIN [Concomitant]
  4. METHYLPREDNISOLONE [Concomitant]
  5. VALGANCICLOVIR [Concomitant]
  6. CLONAZEPAM [Concomitant]
  7. AMPICILIN [Concomitant]

REACTIONS (1)
  - CARDIAC FAILURE [None]
